FAERS Safety Report 16209314 (Version 3)
Quarter: 2019Q2

REPORT INFORMATION
  Report Type: Report from Study
  Country: IT (occurrence: IT)
  Receive Date: 20190417
  Receipt Date: 20190528
  Transmission Date: 20190711
  Serious: Yes (Hospitalization)
  Sender: FDA-Public Use
  Company Number: IT-EXELIXIS-XL18419020213

PATIENT
  Age: 65 Year
  Sex: Male
  Weight: 61.5 kg

DRUGS (15)
  1. CALCITRIOL. [Concomitant]
     Active Substance: CALCITRIOL
  2. XL184 [Suspect]
     Active Substance: CABOZANTINIB
     Dosage: 60 MG, QD
     Route: 048
  3. MEGACE [Concomitant]
     Active Substance: MEGESTROL ACETATE
  4. XTR PROTEIN [Concomitant]
  5. LACTIC FERMENTS [Concomitant]
  6. CARDIOASPIRIN [Concomitant]
     Active Substance: ASPIRIN
  7. SIDERAL FORTE [Concomitant]
     Active Substance: ASCORBIC ACID\FERRIC PYROPHOSPHATE
  8. XL184 [Suspect]
     Active Substance: CABOZANTINIB
     Dosage: 125 MG, QD
     Route: 048
     Dates: start: 20091228
  9. MERITENE [Concomitant]
  10. LEVOTHYROXINE. [Concomitant]
     Active Substance: LEVOTHYROXINE
  11. PARACETAMOL [Concomitant]
     Active Substance: ACETAMINOPHEN
  12. XL184 [Suspect]
     Active Substance: CABOZANTINIB
     Dosage: 75 MG, QD
     Route: 048
     Dates: start: 20100111
  13. XL184 [Suspect]
     Active Substance: CABOZANTINIB
     Indication: MEDULLARY THYROID CANCER
     Dosage: 175 MG, QD
     Route: 048
     Dates: start: 20091210
  14. BIOARGININA [Concomitant]
  15. LOPERAMIDE [Concomitant]
     Active Substance: LOPERAMIDE

REACTIONS (1)
  - Cachexia [Recovered/Resolved]

NARRATIVE: CASE EVENT DATE: 20190402
